FAERS Safety Report 6086530-8 (Version None)
Quarter: 2009Q1

REPORT INFORMATION
  Report Type: 
  Country: None (occurrence: None)
  Receive Date: 20090218
  Receipt Date: 20090202
  Transmission Date: 20090719
  Serious: Yes (Death, Hospitalization)
  Sender: FDA-Public Use
  Company Number: 8042737

PATIENT
  Age: 12 Year
  Sex: Male

DRUGS (2)
  1. KEPPRA [Suspect]
     Indication: MYOCLONUS
     Dosage: 250 MG 2/D PO
     Route: 048
  2. KEPPRA [Suspect]
     Indication: MYOCLONUS
     Dosage: 1000 MG 2/D PO
     Route: 048

REACTIONS (6)
  - COMA [None]
  - DISEASE COMPLICATION [None]
  - DISEASE RECURRENCE [None]
  - ENCEPHALOPATHY [None]
  - INFECTION [None]
  - REFUSAL OF TREATMENT BY PATIENT [None]
